FAERS Safety Report 15777892 (Version 1)
Quarter: 2018Q4

REPORT INFORMATION
  Report Type: Spontaneous
  Country: US (occurrence: US)
  Receive Date: 20181231
  Receipt Date: 20181231
  Transmission Date: 20190205
  Serious: Yes (Hospitalization)
  Sender: FDA-Public Use
  Company Number: None

PATIENT
  Age: 19 Year
  Sex: Female

DRUGS (14)
  1. PEDIASURE [Concomitant]
     Active Substance: VITAMINS
  2. CARNITOR [Concomitant]
     Active Substance: LEVOCARNITINE
  3. ENALAPRIL [Concomitant]
     Active Substance: ENALAPRIL
  4. KEPPRA [Concomitant]
     Active Substance: LEVETIRACETAM
  5. AZATHIOPRINE. [Concomitant]
     Active Substance: AZATHIOPRINE
  6. ZONEGRAN [Concomitant]
     Active Substance: ZONISAMIDE
  7. BD NESTABLE [Concomitant]
  8. COQ10 [Concomitant]
     Active Substance: UBIDECARENONE
  9. VITAMIN C [Concomitant]
     Active Substance: ASCORBIC ACID
  10. ARANESP [Concomitant]
     Active Substance: DARBEPOETIN ALFA
  11. VITAMIN B COMPLEX [Concomitant]
     Active Substance: CYANOCOBALAMIN\DEXPANTHENOL\NIACINAMIDE\PYRIDOXINE HYDROCHLORIDE\RIBOFLAVIN 5^-PHOSPHATE SODIUM\THIAMINE HYDROCHLORIDE\VITAMIN B COMPLEX
  12. ZARXIO [Suspect]
     Active Substance: FILGRASTIM-SNDZ
     Indication: ORGAN TRANSPLANT
     Dosage: ?          OTHER FREQUENCY:Q3 DAYS;?
     Route: 058
     Dates: start: 20181012
  13. PROGRAF [Concomitant]
     Active Substance: TACROLIMUS\TACROLIMUS ANHYDROUS
  14. ZANTAC [Concomitant]
     Active Substance: RANITIDINE HYDROCHLORIDE

REACTIONS (2)
  - Abscess [None]
  - Infection [None]

NARRATIVE: CASE EVENT DATE: 20181204
